FAERS Safety Report 6603910-X (Version None)
Quarter: 2010Q1

REPORT INFORMATION
  Report Type: 
  Country: None (occurrence: None)
  Receive Date: 20100226
  Receipt Date: 20090617
  Transmission Date: 20100710
  Serious: No
  Sender: FDA-Public Use
  Company Number: A0773124A

PATIENT
  Age: 63 Year
  Sex: Female
  Weight: 95.5 kg

DRUGS (1)
  1. LAMICTAL CD [Suspect]
     Indication: DRUG USE FOR UNKNOWN INDICATION
     Dosage: 25MG PER DAY
     Route: 048
     Dates: start: 20090219, end: 20090225

REACTIONS (3)
  - CIRCUMORAL OEDEMA [None]
  - ERYTHEMA [None]
  - RASH [None]
